FAERS Safety Report 24839224 (Version 1)
Quarter: 2025Q1

REPORT INFORMATION
  Report Type: Spontaneous
  Country: KR (occurrence: KR)
  Receive Date: 20250114
  Receipt Date: 20250114
  Transmission Date: 20250409
  Serious: Yes (Death, Other)
  Sender: UNITED THERAPEUTICS
  Company Number: KR-UNITED THERAPEUTICS-UNT-2025-000837

PATIENT
  Sex: Female
  Weight: 48 kg

DRUGS (3)
  1. REMODULIN [Suspect]
     Active Substance: TREPROSTINIL
     Indication: Pulmonary arterial hypertension
  2. REMODULIN [Suspect]
     Active Substance: TREPROSTINIL
     Dates: start: 20190724, end: 20250106
  3. REMODULIN [Suspect]
     Active Substance: TREPROSTINIL
     Dates: start: 20190708, end: 20190714

REACTIONS (1)
  - Pulmonary arterial hypertension [Fatal]
